FAERS Safety Report 10142520 (Version 1)
Quarter: 2014Q2

REPORT INFORMATION
  Report Type: Spontaneous
  Country: US (occurrence: US)
  Receive Date: 20140430
  Receipt Date: 20140430
  Transmission Date: 20141212
  Serious: Yes (Hospitalization)
  Sender: FDA-Public Use
  Company Number: US-BEH-2014042026

PATIENT
  Sex: Female
  Weight: 80 kg

DRUGS (31)
  1. ZEMAIRA [Suspect]
     Indication: ALPHA-1 ANTI-TRYPSIN DEFICIENCY
     Dosage: 981 MG;0.08 ML/KG/MIN. (6.5 ML/MIN)
     Route: 042
  2. PANTOPRAZOLE [Concomitant]
  3. PROVENTIL [Concomitant]
  4. FERROUS SULFATE [Concomitant]
  5. SPIRIVA [Concomitant]
  6. PROAIR [Concomitant]
  7. DEXILANT [Concomitant]
  8. CIPRO [Concomitant]
  9. DIPHENHYDRAMINE [Concomitant]
  10. SODIUM CHLORIDE [Concomitant]
  11. EPIPEN [Concomitant]
  12. OFLOXACIN [Concomitant]
  13. DALIRESP [Concomitant]
  14. VITAMIN D3 [Concomitant]
  15. PV COQ [Concomitant]
  16. OXYGEN [Concomitant]
  17. FLUNISOLIDE [Concomitant]
  18. CRESTOR [Concomitant]
  19. VITAMIN C [Concomitant]
  20. BROVANA [Concomitant]
  21. BUDESONIDE [Concomitant]
  22. FLUTICASONE [Concomitant]
  23. ISOSORBIDE [Concomitant]
  24. AYR SALINE [Concomitant]
  25. KLOR-CON [Concomitant]
  26. LEVOTHYROXINE [Concomitant]
  27. SINGULAIR [Concomitant]
  28. HYDROCHLOROTHIAZIDE [Concomitant]
  29. PLAVIX [Concomitant]
  30. ATENOLOL [Concomitant]
  31. DOCUSATE [Concomitant]

REACTIONS (4)
  - Lung neoplasm malignant [Unknown]
  - Cough [Unknown]
  - Increased bronchial secretion [Unknown]
  - Fatigue [Unknown]
